FAERS Safety Report 5497930-9 (Version None)
Quarter: 2007Q4

REPORT INFORMATION
  Report Type: 
  Country: None (occurrence: None)
  Receive Date: 20071025
  Receipt Date: 20071013
  Transmission Date: 20080405
  Serious: Yes (Other)
  Sender: FDA-Public Use
  Company Number: US-PFIZER INC-2007082510

PATIENT
  Sex: Female

DRUGS (9)
  1. CHANTIX [Suspect]
     Indication: SMOKING CESSATION THERAPY
  2. SYNTHROID [Concomitant]
  3. ACIPHEX [Concomitant]
  4. SEROQUEL [Concomitant]
  5. VITACAL [Concomitant]
  6. VITAMIN E [Concomitant]
  7. ACETYLSALICYLIC ACID SRT [Concomitant]
  8. ADVIL [Concomitant]
  9. COMBIVENT [Concomitant]

REACTIONS (4)
  - DIZZINESS [None]
  - FALL [None]
  - IMPAIRED DRIVING ABILITY [None]
  - WEIGHT INCREASED [None]
